FAERS Safety Report 8240819-2 (Version None)
Quarter: 2012Q1

REPORT INFORMATION
  Report Type: 
  Country: None (occurrence: None)
  Receive Date: 20120328
  Receipt Date: 20120321
  Transmission Date: 20120608
  Serious: Yes (Other)
  Sender: FDA-Public Use
  Company Number: PHEH2012US006150

PATIENT
  Sex: Female

DRUGS (25)
  1. FLAXSEED OIL [Concomitant]
     Dates: start: 20070319
  2. ADVAIR DISKUS 100/50 [Concomitant]
  3. ASTEPRO [Concomitant]
     Dates: start: 20100422
  4. OMEPRAZOLE [Concomitant]
     Dates: start: 20070319
  5. ALBUTEROL [Concomitant]
     Dates: start: 20070319
  6. ACTOS [Concomitant]
  7. ZYRTEC [Concomitant]
  8. HYDRALAZINE HCL [Concomitant]
     Dates: start: 20110526
  9. ASPIRIN [Concomitant]
  10. VICTOZA [Concomitant]
     Dates: start: 20120227
  11. VITAMIN B COMPLEX CAP [Concomitant]
     Dates: start: 20070319
  12. ABILIFY [Concomitant]
     Dates: start: 20101115
  13. VITAMIN D [Concomitant]
     Dosage: 2000 IU, UNK
     Dates: start: 20101115
  14. COQ10 [Concomitant]
     Dates: start: 20080630
  15. MULTIVITE [Concomitant]
     Dates: start: 20070319
  16. FISH OIL [Concomitant]
     Dosage: 1200 MG, UNK
     Dates: start: 20070319
  17. GILENYA [Suspect]
     Indication: MULTIPLE SCLEROSIS
     Dosage: 0.5 MG, QD
     Dates: start: 20110824
  18. PROVIGIL [Concomitant]
     Dosage: 100 MG, BID
     Dates: start: 20110826
  19. CALCIUM CARBONATE [Concomitant]
     Dosage: 800 MG, UNK
     Dates: start: 20070319
  20. SYNTHROID [Concomitant]
     Dosage: 175 MG, UNK
     Dates: start: 20101115
  21. AMBIEN [Concomitant]
     Dosage: 10 MG, UNK
     Dates: start: 20100422
  22. CYMBALTA [Concomitant]
     Dosage: 30 MG, BID
     Dates: start: 20080630
  23. SINGULAIR [Concomitant]
     Dates: start: 20100422
  24. MONONESSA [Concomitant]
     Dates: start: 20070319
  25. RHINOCORT [Concomitant]
     Dates: start: 20070319

REACTIONS (12)
  - MULTIPLE SCLEROSIS RELAPSE [None]
  - MALAISE [None]
  - BLOOD PRESSURE DIASTOLIC INCREASED [None]
  - PNEUMONITIS [None]
  - SOMNOLENCE [None]
  - LYMPHOPENIA [None]
  - CHEST PAIN [None]
  - LEUKOPENIA [None]
  - CEREBROVASCULAR ACCIDENT [None]
  - CEREBRAL ISCHAEMIA [None]
  - PULMONARY CONGESTION [None]
  - FATIGUE [None]
